FAERS Safety Report 6487104-7 (Version None)
Quarter: 2009Q4

REPORT INFORMATION
  Report Type: 
  Country: None (occurrence: None)
  Receive Date: 20091210
  Receipt Date: 20090909
  Transmission Date: 20100525
  Serious: No
  Sender: FDA-Public Use
  Company Number: US-AMGEN-KDL358811

PATIENT
  Sex: Female

DRUGS (1)
  1. ENBREL [Suspect]
     Indication: JUVENILE ARTHRITIS
     Dates: start: 20090601

REACTIONS (2)
  - DRUG DOSE OMISSION [None]
  - NECK PAIN [None]
